FAERS Safety Report 18220474 (Version 2)
Quarter: 2024Q3

REPORT INFORMATION
  Report Type: Report from Study
  Country: CA (occurrence: CA)
  Receive Date: 20200902
  Receipt Date: 20240808
  Transmission Date: 20241017
  Serious: Yes (Other)
  Sender: ROCHE
  Company Number: CA-ROCHE-1549700

PATIENT
  Age: 61 Year
  Sex: Female
  Weight: 60 kg

DRUGS (11)
  1. ACTEMRA [Suspect]
     Active Substance: TOCILIZUMAB
     Indication: Rheumatoid arthritis
     Dosage: LAST DOSE PRIOR TO SERIOUS ADVERSE EVENT (SAE):06/MAR/2015
     Route: 042
     Dates: start: 20150306
  2. ACTEMRA [Suspect]
     Active Substance: TOCILIZUMAB
     Dosage: THERAPY START DATE:14/DEC/2015?STRENGTH: 20 MG/ML
     Route: 042
     Dates: start: 20151217, end: 20160510
  3. ACTEMRA [Suspect]
     Active Substance: TOCILIZUMAB
     Route: 042
     Dates: start: 20160607
  4. OXYCODONE [Suspect]
     Active Substance: OXYCODONE
     Indication: Herpes zoster
     Route: 065
  5. CLINDAMYCIN [Concomitant]
     Active Substance: CLINDAMYCIN
  6. NAPROXEN [Concomitant]
     Active Substance: NAPROXEN
  7. RISEDRONATE SODIUM [Concomitant]
     Active Substance: RISEDRONATE SODIUM
  8. SULFASALAZINE [Concomitant]
     Active Substance: SULFASALAZINE
  9. ARAVA [Concomitant]
     Active Substance: LEFLUNOMIDE
  10. LEFLUNOMIDE [Concomitant]
     Active Substance: LEFLUNOMIDE
  11. VENLAFAXINE HYDROCHLORIDE [Concomitant]
     Active Substance: VENLAFAXINE HYDROCHLORIDE

REACTIONS (15)
  - Weight increased [Unknown]
  - Hand fracture [Recovering/Resolving]
  - Fall [Unknown]
  - Wrist fracture [Not Recovered/Not Resolved]
  - Herpes zoster [Recovering/Resolving]
  - Infusion related reaction [Unknown]
  - Swelling of eyelid [Recovered/Resolved]
  - Eyelids pruritus [Recovered/Resolved]
  - Rash [Recovered/Resolved]
  - Nasopharyngitis [Not Recovered/Not Resolved]
  - Nausea [Unknown]
  - Dry mouth [Unknown]
  - Vomiting [Unknown]
  - Chills [Unknown]
  - Pyrexia [Not Recovered/Not Resolved]

NARRATIVE: CASE EVENT DATE: 20150306
